FAERS Safety Report 19739103 (Version 1)
Quarter: 2021Q3

REPORT INFORMATION
  Report Type: Spontaneous
  Country: US (occurrence: US)
  Receive Date: 20210824
  Receipt Date: 20210824
  Transmission Date: 20211014
  Serious: No
  Sender: FDA-Public Use
  Company Number: US-PFIZER INC-2021423529

PATIENT
  Age: 53 Year
  Sex: Female
  Weight: 87.08 kg

DRUGS (19)
  1. ONDANSETRON HCL [Concomitant]
     Active Substance: ONDANSETRON HYDROCHLORIDE
  2. LEVOCETIRIZINE [Concomitant]
     Active Substance: LEVOCETIRIZINE
  3. METOPROLOL TARTRATE. [Concomitant]
     Active Substance: METOPROLOL TARTRATE
  4. OXYCODONE HYDROCHLORIDE. [Concomitant]
     Active Substance: OXYCODONE HYDROCHLORIDE
  5. OMEPRAZOLE. [Concomitant]
     Active Substance: OMEPRAZOLE
  6. FLUTICASONE PROPIONATE. [Concomitant]
     Active Substance: FLUTICASONE PROPIONATE
  7. XARELTO [Concomitant]
     Active Substance: RIVAROXABAN
  8. VITAMIN C + ROSEHIP [Concomitant]
  9. DAILY VITE MULTIVITAMIN FOR CHILDREN [Concomitant]
  10. TYLENOL [Concomitant]
     Active Substance: ACETAMINOPHEN
  11. VITAMINE D3 B.O.N. [Concomitant]
     Active Substance: CHOLECALCIFEROL
  12. ZINCATE [Concomitant]
  13. IBRANCE [Suspect]
     Active Substance: PALBOCICLIB
     Indication: BREAST CANCER
     Dosage: 100 MG, CYCLIC (DAILY FOR 21 DAYS)
     Route: 048
     Dates: start: 20190501
  14. ADVIL 12 HOUR [Concomitant]
     Active Substance: IBUPROFEN
  15. PROMETHAZINE HCL [Concomitant]
     Active Substance: PROMETHAZINE HYDROCHLORIDE
  16. ASPIRIN (E.C.) [Concomitant]
     Active Substance: ASPIRIN
  17. MONTELUKAST SODIUM. [Concomitant]
     Active Substance: MONTELUKAST SODIUM
  18. IBUPROFEN. [Concomitant]
     Active Substance: IBUPROFEN
  19. LIDOCAINE 5% EXTRA [Concomitant]

REACTIONS (1)
  - Blood count abnormal [Unknown]
